FAERS Safety Report 8662899 (Version 2)
Quarter: 2013Q4

REPORT INFORMATION
  Report Type: Report from Study
  Country: US (occurrence: US)
  Receive Date: 20120712
  Receipt Date: 20131031
  Transmission Date: 20140711
  Serious: Yes (Life-Threatening, Hospitalization)
  Sender: FDA-Public Use
  Company Number: US-009507513-1206USA00706

PATIENT
  Age: 61 Year
  Sex: Male
  Weight: 96.4 kg

DRUGS (2)
  1. VORINOSTAT-MYCOSIS FUNGOIDES [Suspect]
     Indication: GLIOBLASTOMA MULTIFORME
     Dosage: 300 MG, Q5W
     Route: 048
     Dates: start: 20120430, end: 20120530
  2. TEMOZOLOMIDE [Suspect]
     Indication: GLIOBLASTOMA MULTIFORME
     Dosage: 75 MG/M2, QD
     Route: 048
     Dates: start: 20120430, end: 20120530

REACTIONS (3)
  - Platelet count decreased [Recovering/Resolving]
  - Neutrophil count decreased [Recovering/Resolving]
  - White blood cell count decreased [Recovering/Resolving]
